FAERS Safety Report 14996997 (Version 1)
Quarter: 2018Q2

REPORT INFORMATION
  Report Type: Spontaneous
  Country: FR (occurrence: FR)
  Receive Date: 20180611
  Receipt Date: 20180611
  Transmission Date: 20180711
  Serious: Yes (Hospitalization)
  Sender: FDA-Public Use
  Company Number: FR-TEVA-2018-FR-904734

PATIENT
  Age: 61 Year
  Sex: Female
  Weight: 55 kg

DRUGS (2)
  1. PYOSTACINE [Suspect]
     Active Substance: PRISTINAMYCIN
     Indication: CHRONIC OBSTRUCTIVE PULMONARY DISEASE
     Route: 048
     Dates: start: 20180322, end: 20180325
  2. FURADANTINE [Suspect]
     Active Substance: NITROFURANTOIN
     Indication: LOWER URINARY TRACT SYMPTOMS
     Route: 048
     Dates: start: 20180401, end: 20180404

REACTIONS (3)
  - Purpura [Recovering/Resolving]
  - Pyrexia [Recovered/Resolved]
  - Urticaria [Recovered/Resolved]

NARRATIVE: CASE EVENT DATE: 20180403
